FAERS Safety Report 5943011-7 (Version None)
Quarter: 2008Q4

REPORT INFORMATION
  Report Type: 
  Country: None (occurrence: None)
  Receive Date: 20081106
  Receipt Date: 20081027
  Transmission Date: 20090506
  Serious: Yes (Hospitalization)
  Sender: FDA-Public Use
  Company Number: ES-BAYER-200829474GPV

PATIENT
  Age: 66 Year
  Sex: Male

DRUGS (2)
  1. ADALAT [Suspect]
     Indication: HYPERTENSION
     Route: 065
     Dates: start: 20070101, end: 20080325
  2. ZESTRIL [Suspect]
     Indication: HYPERTENSION
     Route: 065
     Dates: start: 20070101, end: 20080327

REACTIONS (2)
  - COUGH [None]
  - DYSPNOEA [None]
